FAERS Safety Report 6983347-4 (Version None)
Quarter: 2010Q3

REPORT INFORMATION
  Report Type: 
  Country: None (occurrence: None)
  Receive Date: 20100910
  Receipt Date: 20100702
  Transmission Date: 20110219
  Serious: Yes (Disabling)
  Sender: FDA-Public Use
  Company Number: 2010S1000331

PATIENT
  Age: 51 Year
  Sex: Female

DRUGS (11)
  1. VENLAFAXINE HCL EXTENDED-RELEASE [Suspect]
     Indication: DEPRESSION
     Dosage: 225 MG; QD; PO
     Route: 048
     Dates: start: 20100503
  2. VENLAFAXINE HCL EXTENDED-RELEASE [Suspect]
     Indication: MIGRAINE
     Dosage: 225 MG; QD; PO
     Route: 048
     Dates: start: 20100503
  3. EFFEXOR XR [Suspect]
     Dosage: QD; PO
     Dates: end: 20100501
  4. TOPAMAX [Concomitant]
  5. TIZANIDINE HCL [Concomitant]
  6. TRAZODONE HCL [Concomitant]
  7. VERAPAMIL [Concomitant]
  8. HYDROCHLOROTHIAZIDE [Concomitant]
  9. MULTI-VITAMINS [Concomitant]
  10. VITAMIN D [Concomitant]
  11. POTASSIUM [Concomitant]

REACTIONS (10)
  - CONDITION AGGRAVATED [None]
  - DRUG INEFFECTIVE [None]
  - DRUG WITHDRAWAL SYNDROME [None]
  - INFLUENZA LIKE ILLNESS [None]
  - MALAISE [None]
  - MIGRAINE [None]
  - PRODUCT SUBSTITUTION ISSUE [None]
  - PYREXIA [None]
  - SUICIDAL IDEATION [None]
  - VIRAL INFECTION [None]
